FAERS Safety Report 17100071 (Version 1)
Quarter: 2019Q4

REPORT INFORMATION
  Report Type: Spontaneous
  Country: FR (occurrence: FR)
  Receive Date: 20191202
  Receipt Date: 20191202
  Transmission Date: 20200122
  Serious: Yes (Other)
  Sender: FDA-Public Use
  Company Number: NVSC2019FR049462

PATIENT
  Age: 1 Year
  Sex: Female

DRUGS (2)
  1. ASPEGIC (ACETYLSALICYLATE LYSINE) [Suspect]
     Active Substance: ASPIRIN DL-LYSINE
     Indication: PRODUCT ADMINISTRATION ERROR
     Dosage: 5 MG (1 TOTAL)
     Route: 048
     Dates: start: 20190601, end: 20190601
  2. ENALAPRIL MALEATE. [Suspect]
     Active Substance: ENALAPRIL MALEATE
     Indication: PRODUCT ADMINISTRATION ERROR
     Dosage: 1.2 MG (1 TOTAL)
     Route: 048
     Dates: start: 20190601, end: 20190601

REACTIONS (5)
  - Toxicity to various agents [Recovered/Resolved]
  - Emergency care examination normal [Recovered/Resolved]
  - Accidental overdose [Recovered/Resolved]
  - Inappropriate schedule of product administration [Recovered/Resolved]
  - Product administration error [Recovered/Resolved]

NARRATIVE: CASE EVENT DATE: 20190601
